FAERS Safety Report 10439424 (Version 1)
Quarter: 2014Q3

REPORT INFORMATION
  Report Type: Spontaneous
  Country: JP (occurrence: None)
  Receive Date: 20140905
  Receipt Date: 20140905
  Transmission Date: 20150326
  Serious: Yes (Death, Life-Threatening)
  Sender: FDA-Public Use
  Company Number: FK201403553

PATIENT
  Age: 76 Year
  Sex: Female

DRUGS (3)
  1. MILRINONE [Suspect]
     Active Substance: MILRINONE
     Indication: INTESTINAL ISCHAEMIA
     Dosage: 0.05 MG/KG PER MINUTE , UNKNOWN
  2. NOREPINEPHRINE [Concomitant]
     Active Substance: NOREPINEPHRINE\NOREPINEPHRINE BITARTRATE
  3. VASOPRESSIN [Suspect]
     Active Substance: VASOPRESSIN
     Indication: PRODUCT USED FOR UNKNOWN INDICATION
     Dosage: 0.05 IU/KG PER HOUR, UNKNOWN

REACTIONS (4)
  - Ventricular fibrillation [None]
  - Hyperkalaemia [None]
  - Continuous haemodiafiltration [None]
  - Multi-organ failure [None]
